FAERS Safety Report 9916875 (Version 1)
Quarter: 2014Q1

REPORT INFORMATION
  Report Type: Spontaneous
  Country: US (occurrence: US)
  Receive Date: 20140221
  Receipt Date: 20140221
  Transmission Date: 20141002
  Serious: No
  Sender: FDA-Public Use
  Company Number: US-MYLANLABS-2013S1024672

PATIENT
  Age: 36 Year
  Sex: Male
  Weight: 136.08 kg

DRUGS (2)
  1. LAMOTRIGINE TABLETS [Suspect]
     Indication: MOOD DISORDER DUE TO A GENERAL MEDICAL CONDITION
     Route: 048
     Dates: start: 2012
  2. LAMOTRIGINE TABLETS [Suspect]
     Indication: MOOD DISORDER DUE TO A GENERAL MEDICAL CONDITION
     Route: 048
     Dates: start: 2012

REACTIONS (2)
  - Drug effect decreased [Recovered/Resolved]
  - Anger [Recovered/Resolved]
